FAERS Safety Report 6548431-8 (Version None)
Quarter: 2010Q1

REPORT INFORMATION
  Report Type: 
  Country: None (occurrence: None)
  Receive Date: 20100124
  Receipt Date: 20090625
  Transmission Date: 20100710
  Serious: No
  Sender: FDA-Public Use
  Company Number: US-ALLERGAN-0909025US

PATIENT
  Age: 71 Year
  Sex: Female

DRUGS (3)
  1. RESTASIS [Suspect]
     Indication: SJOGREN'S SYNDROME
     Dosage: UNK, QD
     Route: 047
  2. OPTIVE [Concomitant]
  3. GENTEAL [Concomitant]

REACTIONS (3)
  - EXPIRED DRUG ADMINISTERED [None]
  - EYE PAIN [None]
  - VISION BLURRED [None]
